FAERS Safety Report 24209782 (Version 2)
Quarter: 2024Q3

REPORT INFORMATION
  Report Type: Spontaneous
  Country: US (occurrence: US)
  Receive Date: 20240814
  Receipt Date: 20240912
  Transmission Date: 20241016
  Serious: Yes (Hospitalization)
  Sender: CALLIDITAS THERAPEUTICS
  Company Number: US-Calliditas-2024CAL01114

PATIENT
  Age: 64 Year
  Sex: Male

DRUGS (2)
  1. TARPEYO [Suspect]
     Active Substance: BUDESONIDE
     Indication: IgA nephropathy
     Route: 048
     Dates: start: 20240406
  2. TORSEMIDE [Suspect]
     Active Substance: TORSEMIDE
     Indication: Product used for unknown indication

REACTIONS (7)
  - Muscle spasms [Unknown]
  - Hypertension [Unknown]
  - Blood glucose increased [Unknown]
  - Peripheral swelling [Unknown]
  - Sinusitis [Unknown]
  - Oedema peripheral [Unknown]
  - Gait disturbance [Unknown]
